FAERS Safety Report 12853324 (Version 1)
Quarter: 2016Q4

REPORT INFORMATION
  Report Type: Spontaneous
  Country: US (occurrence: US)
  Receive Date: 20161017
  Receipt Date: 20161017
  Transmission Date: 20170207
  Serious: No
  Sender: FDA-Public Use
  Company Number: US-JAZZ-2016-US-014147

PATIENT
  Sex: Female

DRUGS (51)
  1. XYREM [Suspect]
     Active Substance: SODIUM OXYBATE
     Dosage: 4.5 G, BID
     Route: 048
     Dates: start: 201507
  2. BOTOX COSMETIC [Concomitant]
     Active Substance: ONABOTULINUMTOXINA
  3. BROVANA [Concomitant]
     Active Substance: ARFORMOTEROL TARTRATE
  4. BACLOFEN. [Concomitant]
     Active Substance: BACLOFEN
  5. AMLODIPINE BESYLATE. [Concomitant]
     Active Substance: AMLODIPINE BESYLATE
  6. AMPYRA [Concomitant]
     Active Substance: DALFAMPRIDINE
  7. ESTRADIOL CYPIONATE [Concomitant]
     Active Substance: ESTRADIOL CYPIONATE
  8. SUCRALFATE. [Concomitant]
     Active Substance: SUCRALFATE
  9. XYREM [Suspect]
     Active Substance: SODIUM OXYBATE
     Dosage: 4.5 G, BID
     Route: 048
     Dates: start: 201303, end: 2015
  10. LOSARTAN. [Concomitant]
     Active Substance: LOSARTAN
  11. CROMOLYN SODIUM. [Concomitant]
     Active Substance: CROMOLYN SODIUM
  12. ULTRAM [Concomitant]
     Active Substance: TRAMADOL HYDROCHLORIDE
  13. CLONIDINE HCL [Concomitant]
     Active Substance: CLONIDINE HYDROCHLORIDE
  14. XOPENEX HFA [Concomitant]
     Active Substance: LEVALBUTEROL TARTRATE
  15. BENTYL [Concomitant]
     Active Substance: DICYCLOMINE HYDROCHLORIDE
  16. LEVSIN [Concomitant]
     Active Substance: HYOSCYAMINE SULFATE
  17. PREDNISONE. [Concomitant]
     Active Substance: PREDNISONE
  18. ZYRTEC [Concomitant]
     Active Substance: CETIRIZINE HYDROCHLORIDE
  19. SINGULAIR [Concomitant]
     Active Substance: MONTELUKAST SODIUM
  20. NASOCORT [Concomitant]
     Active Substance: BUDESONIDE
  21. PROCARDIA [Concomitant]
     Active Substance: NIFEDIPINE
  22. LASIX [Concomitant]
     Active Substance: FUROSEMIDE
  23. LIDODERM [Concomitant]
     Active Substance: LIDOCAINE
  24. LORTAB [Concomitant]
     Active Substance: ACETAMINOPHEN\HYDROCODONE BITARTRATE
  25. QVAR [Concomitant]
     Active Substance: BECLOMETHASONE DIPROPIONATE
  26. OMEPRAZOLE. [Concomitant]
     Active Substance: OMEPRAZOLE
  27. PROVIGIL [Concomitant]
     Active Substance: MODAFINIL
  28. XYREM [Suspect]
     Active Substance: SODIUM OXYBATE
     Indication: CATAPLEXY
     Dosage: 4.5 G, BID
     Route: 048
     Dates: start: 200601, end: 2011
  29. OXYCONTIN [Concomitant]
     Active Substance: OXYCODONE HYDROCHLORIDE
  30. CARISOPRODOL. [Concomitant]
     Active Substance: CARISOPRODOL
  31. OXYCODONE HYDROCHLORIDE. [Concomitant]
     Active Substance: OXYCODONE HYDROCHLORIDE
  32. XYREM [Suspect]
     Active Substance: SODIUM OXYBATE
     Dosage: 4.5 G, BID
     Route: 048
     Dates: start: 201203, end: 2012
  33. NEURONTIN [Concomitant]
     Active Substance: GABAPENTIN
  34. TOVIAZ [Concomitant]
     Active Substance: FESOTERODINE FUMARATE
  35. LEVOTHYROXINE SODIUM. [Concomitant]
     Active Substance: LEVOTHYROXINE SODIUM
  36. LISINOPRIL. [Concomitant]
     Active Substance: LISINOPRIL
  37. MELOXICAM. [Concomitant]
     Active Substance: MELOXICAM
  38. TRAMADOL HCL [Concomitant]
     Active Substance: TRAMADOL HYDROCHLORIDE
  39. IMITREX [Concomitant]
     Active Substance: SUMATRIPTAN SUCCINATE
  40. MAXAIR [Concomitant]
     Active Substance: PIRBUTEROL ACETATE
  41. SOMA [Concomitant]
     Active Substance: CARISOPRODOL
  42. SPIRONOLACTONE. [Concomitant]
     Active Substance: SPIRONOLACTONE
  43. HYDROCODONE BITARTRATE AND ACETAMINOPHEN [Concomitant]
     Active Substance: ACETAMINOPHEN\HYDROCODONE BITARTRATE
  44. LINZESS [Concomitant]
     Active Substance: LINACLOTIDE
  45. XYREM [Suspect]
     Active Substance: SODIUM OXYBATE
     Indication: NARCOLEPSY
     Dosage: 2.25 G, BID
     Route: 048
     Dates: start: 200305, end: 2004
  46. ATROVENT HFA [Concomitant]
     Active Substance: IPRATROPIUM BROMIDE
  47. URIBEL [Concomitant]
     Active Substance: HYOSCYAMINE SULFATE\METHENAMINE\METHYLENE BLUE\PHENYL SALICYLATE\SODIUM PHOSPHATE, MONOBASIC, MONOHYDRATE
  48. AUBAGIO [Concomitant]
     Active Substance: TERIFLUNOMIDE
  49. MINOCYCLINE [Concomitant]
     Active Substance: MINOCYCLINE\MINOCYCLINE HYDROCHLORIDE
  50. RESTASIS [Concomitant]
     Active Substance: CYCLOSPORINE
  51. TAMSULOSIN HCL [Concomitant]
     Active Substance: TAMSULOSIN

REACTIONS (4)
  - Eczema [Not Recovered/Not Resolved]
  - Dental care [Unknown]
  - Skin fissures [Not Recovered/Not Resolved]
  - Pain [Unknown]
